FAERS Safety Report 14404285 (Version 7)
Quarter: 2019Q2

REPORT INFORMATION
  Report Type: Spontaneous
  Country: US (occurrence: US)
  Receive Date: 20180117
  Receipt Date: 20190618
  Transmission Date: 20190711
  Serious: Yes (Hospitalization, Other)
  Sender: FDA-Public Use
  Company Number: US-DSJP-DSU-2017-133100

PATIENT

DRUGS (2)
  1. BENICAR HCT [Suspect]
     Active Substance: HYDROCHLOROTHIAZIDE\OLMESARTAN MEDOXOMIL
     Indication: PRODUCT USED FOR UNKNOWN INDICATION
     Dosage: 20/12.5MG, QD
     Route: 048
     Dates: start: 2003, end: 20161031
  2. BENICAR HCT [Suspect]
     Active Substance: HYDROCHLOROTHIAZIDE\OLMESARTAN MEDOXOMIL
     Dosage: 40/25MG, UNK
     Dates: start: 2003, end: 20161031

REACTIONS (15)
  - Gastrooesophageal reflux disease [Recovered/Resolved]
  - Gastric ulcer [Recovering/Resolving]
  - Sprue-like enteropathy [Recovering/Resolving]
  - Anaemia [Unknown]
  - Syncope [Unknown]
  - Haemorrhoids [Recovered/Resolved]
  - Gastrointestinal haemorrhage [Not Recovered/Not Resolved]
  - Gastric disorder [Recovered/Resolved]
  - Gastric polyps [Unknown]
  - Diverticulum [Recovered/Resolved]
  - Reactive gastropathy [Recovered/Resolved]
  - Peptic ulcer [Unknown]
  - Hiatus hernia [Recovered/Resolved]
  - Irritable bowel syndrome [Recovered/Resolved]
  - Rectal prolapse [Recovered/Resolved]

NARRATIVE: CASE EVENT DATE: 2003
